FAERS Safety Report 6082493-X (Version None)
Quarter: 2009Q1

REPORT INFORMATION
  Report Type: 
  Country: None (occurrence: None)
  Receive Date: 20090218
  Receipt Date: 20090217
  Transmission Date: 20090719
  Serious: Yes (Hospitalization)
  Sender: FDA-Public Use
  Company Number: US-BRISTOL-MYERS SQUIBB COMPANY-14508600

PATIENT
  Age: 51 Year
  Sex: Male
  Weight: 122 kg

DRUGS (13)
  1. ABILIFY [Suspect]
     Indication: DEPRESSION
     Dosage: 2005 PATIENT STARTED ABILIFY 10MG WITH INCREASES TO 20MG BY 2006 AND DOSAGE DECREASED TO 5MG
     Dates: start: 20050101
  2. ABILIFY [Suspect]
     Indication: BIPOLAR DISORDER
     Dosage: 2005 PATIENT STARTED ABILIFY 10MG WITH INCREASES TO 20MG BY 2006 AND DOSAGE DECREASED TO 5MG
     Dates: start: 20050101
  3. EFFEXOR [Concomitant]
  4. METFORMIN HCL [Concomitant]
  5. PROVIGIL [Concomitant]
  6. LOPRESSOR [Concomitant]
  7. HYDROCHLOROTHIAZIDE [Concomitant]
  8. AVACOR [Concomitant]
  9. PERCOCET [Concomitant]
  10. OXYCONTIN [Concomitant]
  11. ADDERALL 10 [Concomitant]
  12. SEROQUEL [Concomitant]
  13. SOMA [Concomitant]

REACTIONS (2)
  - DEMENTIA [None]
  - WEIGHT INCREASED [None]
